FAERS Safety Report 10235268 (Version 1)
Quarter: 2014Q2

REPORT INFORMATION
  Report Type: Spontaneous
  Country: US (occurrence: US)
  Receive Date: 20140613
  Receipt Date: 20140613
  Transmission Date: 20141212
  Serious: No
  Sender: FDA-Public Use
  Company Number: US-PFIZER INC-2014162807

PATIENT
  Age: 55 Year
  Sex: Female
  Weight: 54.4 kg

DRUGS (1)
  1. GEODON [Suspect]
     Indication: ANXIETY
     Dosage: 80 MG, 2X/DAY
     Dates: start: 2002, end: 2013

REACTIONS (2)
  - Somnambulism [Unknown]
  - Abnormal sleep-related event [Unknown]
